FAERS Safety Report 19232840 (Version 1)
Quarter: 2021Q2

REPORT INFORMATION
  Report Type: Spontaneous
  Country: CN (occurrence: CN)
  Receive Date: 20210507
  Receipt Date: 20210507
  Transmission Date: 20210717
  Serious: Yes (Other)
  Sender: FDA-Public Use
  Company Number: CN-SA-2021SA141669

PATIENT
  Age: 53 Year
  Sex: Female

DRUGS (1)
  1. LANTUS [Suspect]
     Active Substance: INSULIN GLARGINE
     Indication: DIABETES MELLITUS
     Dosage: 30 IU, QD
     Route: 058
     Dates: start: 20210323, end: 20210323

REACTIONS (2)
  - Erythema induratum [Recovering/Resolving]
  - Induration [Recovering/Resolving]

NARRATIVE: CASE EVENT DATE: 20210325
